FAERS Safety Report 21975945 (Version 2)
Quarter: 2023Q1

REPORT INFORMATION
  Report Type: Spontaneous
  Country: US (occurrence: US)
  Receive Date: 20230210
  Receipt Date: 20230309
  Transmission Date: 20230418
  Serious: No
  Sender: FDA-Public Use
  Company Number: US-UNITED THERAPEUTICS-UNT-2023-003538

PATIENT
  Sex: Female
  Weight: 80.272 kg

DRUGS (2)
  1. REMODULIN [Suspect]
     Active Substance: TREPROSTINIL
     Indication: Pulmonary arterial hypertension
     Dosage: 0.050 ?G/KG (SELF FILL CASSETTE WITH 3 ML; AT A RATE OF 46 MCL/HOUR), CONTINUING
     Route: 058
  2. REMODULIN [Suspect]
     Active Substance: TREPROSTINIL
     Dosage: UNK, CONTINUING
     Route: 058
     Dates: start: 20221209

REACTIONS (11)
  - Infusion site pain [Unknown]
  - Infusion site extravasation [Unknown]
  - Infusion site erythema [Unknown]
  - Infusion site pruritus [Unknown]
  - Infusion site vesicles [Unknown]
  - Infusion site irritation [Unknown]
  - Infusion site nodule [Unknown]
  - Infusion site oedema [Unknown]
  - Underdose [Unknown]
  - Dyspnoea [Unknown]
  - Infusion site discharge [Unknown]
